FAERS Safety Report 6977502-7 (Version None)
Quarter: 2010Q3

REPORT INFORMATION
  Report Type: 
  Country: None (occurrence: None)
  Receive Date: 20100910
  Receipt Date: 20100902
  Transmission Date: 20110219
  Serious: Yes (Death)
  Sender: FDA-Public Use
  Company Number: NL-AMGEN-QUU434909

PATIENT
  Age: 53 Year
  Sex: Female
  Weight: 70 kg

DRUGS (9)
  1. ENBREL [Suspect]
     Indication: RHEUMATOID ARTHRITIS
     Route: 058
     Dates: start: 20080501, end: 20100401
  2. PREDNISONE [Concomitant]
     Indication: RHEUMATOID ARTHRITIS
  3. OMEPRAZOLE [Concomitant]
     Indication: THROMBOCYTOSIS
     Dosage: 20 MG EVERY
  4. CALCICHEW-D3 [Concomitant]
     Indication: OSTEOPOROSIS
  5. ASCAL [Concomitant]
     Indication: THROMBOCYTOSIS
  6. HYDREA [Concomitant]
     Indication: POLYCYTHAEMIA VERA
     Dosage: ACCORDING TO PRESCRIBTION INTERNIST
  7. HYDREA [Concomitant]
     Indication: THROMBOCYTOSIS
  8. HYDREA [Concomitant]
     Indication: LEUKOCYTOSIS
  9. APD [Concomitant]
     Indication: OSTEOPOROSIS

REACTIONS (3)
  - ACUTE MYELOID LEUKAEMIA [None]
  - ACUTE RESPIRATORY DISTRESS SYNDROME [None]
  - SEPSIS [None]
